FAERS Safety Report 9790646 (Version 2)
Quarter: 2014Q1

REPORT INFORMATION
  Report Type: Spontaneous
  Country: US (occurrence: US)
  Receive Date: 20131231
  Receipt Date: 20140127
  Transmission Date: 20141002
  Serious: No
  Sender: FDA-Public Use
  Company Number: US-PFIZER INC-2013374072

PATIENT
  Age: 65 Year
  Sex: Male
  Weight: 102 kg

DRUGS (5)
  1. CHANTIX [Suspect]
     Indication: SMOKING CESSATION THERAPY
     Dosage: 0.5 MG, 1X/DAY
     Route: 048
     Dates: start: 201312, end: 201312
  2. CHANTIX [Suspect]
     Dosage: 1 MG, 2X/DAY
     Route: 048
     Dates: start: 201312
  3. DILTIAZEM [Concomitant]
     Indication: HYPERTENSION
     Dosage: 360 MG, 1X/DAY (AT BED TIME)
     Dates: start: 20130930
  4. COLCRYS [Concomitant]
     Dosage: 0.6 MG, 1X/DAY
     Route: 048
     Dates: start: 20131011
  5. ALLOPURINOL [Concomitant]
     Dosage: 300 MG, 1X/DAY
     Dates: start: 20130709

REACTIONS (1)
  - Abdominal discomfort [Recovered/Resolved]
